FAERS Safety Report 17847910 (Version 1)
Quarter: 2020Q2

REPORT INFORMATION
  Report Type: Spontaneous
  Country: US (occurrence: US)
  Receive Date: 20200601
  Receipt Date: 20200601
  Transmission Date: 20200714
  Serious: No
  Sender: FDA-Public Use
  Company Number: US-ACTELION-A-US2020-205217

PATIENT
  Sex: Female

DRUGS (4)
  1. UPTRAVI [Suspect]
     Active Substance: SELEXIPAG
     Dosage: 600 MCG, BID
     Route: 048
     Dates: start: 2019
  2. WARFARIN [Concomitant]
     Active Substance: WARFARIN
  3. UPTRAVI [Suspect]
     Active Substance: SELEXIPAG
     Indication: PULMONARY HYPERTENSION
     Dosage: 800 MCG, BID
     Route: 048
     Dates: start: 20200501
  4. TRACLEER [Suspect]
     Active Substance: BOSENTAN
     Indication: PULMONARY HYPERTENSION
     Dosage: 125 MG, BID
     Route: 048

REACTIONS (11)
  - Haemorrhoids [Unknown]
  - Dry mouth [Unknown]
  - Fatigue [Unknown]
  - Discomfort [Unknown]
  - Decreased appetite [Unknown]
  - Myalgia [Unknown]
  - Diarrhoea [Unknown]
  - Haematochezia [Unknown]
  - Faeces discoloured [Unknown]
  - Mucous stools [Unknown]
  - Productive cough [Unknown]
